FAERS Safety Report 25325442 (Version 1)
Quarter: 2025Q2

REPORT INFORMATION
  Report Type: Spontaneous
  Country: US (occurrence: US)
  Receive Date: 20250516
  Receipt Date: 20250516
  Transmission Date: 20250716
  Serious: Yes (Other)
  Sender: SANDOZ
  Company Number: US-SANDOZ-SDZ2025US031664

PATIENT
  Sex: Female

DRUGS (2)
  1. AZITHROMYCIN [Suspect]
     Active Substance: AZITHROMYCIN
     Indication: Product used for unknown indication
     Route: 065
  2. AMIKACIN [Suspect]
     Active Substance: AMIKACIN
     Indication: Product used for unknown indication
     Route: 065

REACTIONS (7)
  - Pulmonary cavitation [Not Recovered/Not Resolved]
  - Condition aggravated [Not Recovered/Not Resolved]
  - Lung abscess [Unknown]
  - Dyspnoea exertional [Unknown]
  - Haemoptysis [Unknown]
  - Drug resistance [Unknown]
  - Fatigue [Unknown]
